FAERS Safety Report 12804726 (Version 1)
Quarter: 2016Q4

REPORT INFORMATION
  Report Type: Spontaneous
  Country: JP (occurrence: JP)
  Receive Date: 20161003
  Receipt Date: 20161003
  Transmission Date: 20170207
  Serious: Yes (Hospitalization, Other)
  Sender: FDA-Public Use
  Company Number: JP-ALLERGAN-1670332US

PATIENT
  Age: 85 Year

DRUGS (3)
  1. MEMARY OD [Suspect]
     Active Substance: MEMANTINE HYDROCHLORIDE
     Indication: DEMENTIA ALZHEIMER^S TYPE
     Dosage: 5 MG, QD
     Route: 048
     Dates: start: 20160808, end: 20160819
  2. REMINYL [Concomitant]
     Active Substance: GALANTAMINE
     Indication: DEMENTIA
     Dosage: UNK
  3. MEMARY OD [Suspect]
     Active Substance: MEMANTINE HYDROCHLORIDE
     Dosage: 10 MG, QD
     Route: 048
     Dates: start: 20160820

REACTIONS (2)
  - Decreased appetite [Not Recovered/Not Resolved]
  - Refusal of treatment by patient [Not Recovered/Not Resolved]

NARRATIVE: CASE EVENT DATE: 20160809
